FAERS Safety Report 5808646-0 (Version None)
Quarter: 2008Q3

REPORT INFORMATION
  Report Type: 
  Country: None (occurrence: None)
  Receive Date: 20080714
  Receipt Date: 20080709
  Transmission Date: 20090109
  Serious: Yes (Hospitalization, Other)
  Sender: FDA-Public Use
  Company Number: FR-BRISTOL-MYERS SQUIBB COMPANY-14255947

PATIENT
  Age: 81 Year
  Sex: Female

DRUGS (12)
  1. COUMADIN [Suspect]
     Dosage: RECHALLANGED TO 3MG/D
  2. IXPRIM [Suspect]
     Dates: end: 20080213
  3. MEPRONIZINE [Suspect]
     Dates: end: 20080213
  4. RISPERDAL [Suspect]
     Dosage: REDUCED TO 0.5MG AND UPTITRATED TO 0.75MG/D
  5. FUROSEMIDE [Suspect]
  6. VALIUM [Suspect]
     Dates: end: 20080213
  7. DEPAKOTE [Concomitant]
  8. CYMBALTA [Concomitant]
  9. SKENAN [Concomitant]
  10. ARICEPT [Concomitant]
  11. LEVOTHYROX [Concomitant]
  12. TRANSIPEG [Concomitant]

REACTIONS (12)
  - AGITATION [None]
  - CONFUSIONAL STATE [None]
  - DEMENTIA [None]
  - DISTURBANCE IN ATTENTION [None]
  - DYSPNOEA [None]
  - FALL [None]
  - HAEMARTHROSIS [None]
  - HYPOKALAEMIA [None]
  - INTERNATIONAL NORMALISED RATIO INCREASED [None]
  - OVERDOSE [None]
  - RENAL FAILURE ACUTE [None]
  - SOMNOLENCE [None]
